FAERS Safety Report 8614131-3 (Version None)
Quarter: 2012Q3

REPORT INFORMATION
  Report Type: 
  Country: None (occurrence: None)
  Receive Date: 20120823
  Receipt Date: 20120813
  Transmission Date: 20120928
  Serious: Yes (Other)
  Sender: FDA-Public Use
  Company Number: BR-009507513-1208BRA005853

PATIENT

DRUGS (1)
  1. AMITRIPTYLINE HCL [Suspect]
     Dosage: UNK UNK, UNKNOWN
     Route: 065

REACTIONS (1)
  - EPILEPSY [None]
